FAERS Safety Report 9252510 (Version 1)
Quarter: 2013Q2

REPORT INFORMATION
  Report Type: Spontaneous
  Country: US (occurrence: US)
  Receive Date: 20130424
  Receipt Date: 20130424
  Transmission Date: 20140414
  Serious: No
  Sender: FDA-Public Use
  Company Number: US-MYLANLABS-2013S1005587

PATIENT
  Age: 54 Year
  Sex: Female

DRUGS (1)
  1. NISOLDIPINE EXTENDED-RELEASE TABLETS [Suspect]
     Indication: HYPERTENSION
     Route: 048
     Dates: start: 20130228, end: 20130303

REACTIONS (1)
  - Rash [Recovered/Resolved]
